FAERS Safety Report 12079429 (Version 1)
Quarter: 2016Q1

REPORT INFORMATION
  Report Type: Spontaneous
  Country: US (occurrence: None)
  Receive Date: 20160212
  Receipt Date: 20160212
  Transmission Date: 20160526
  Serious: Yes (Life-Threatening, Hospitalization)
  Sender: FDA-Public Use
  Company Number: None

PATIENT
  Age: 73 Year
  Sex: Female
  Weight: 93.44 kg

DRUGS (11)
  1. METFORMIN [Concomitant]
     Active Substance: METFORMIN HYDROCHLORIDE
  2. DIOVAN [Concomitant]
     Active Substance: VALSARTAN
  3. VITAMIN D [Concomitant]
     Active Substance: CHOLECALCIFEROL
  4. FARXIGA [Suspect]
     Active Substance: DAPAGLIFLOZIN PROPANEDIOL
     Indication: DIABETES MELLITUS
     Dosage: 5MG 1 TAB BY MOUTH EVERY AM BY MOUTH
     Route: 048
     Dates: start: 201503, end: 20151124
  5. ATENOLOL. [Concomitant]
     Active Substance: ATENOLOL
  6. NOVALOG [Concomitant]
  7. BABY ASPIRIN [Concomitant]
     Active Substance: ASPIRIN
  8. LIPITOR [Concomitant]
     Active Substance: ATORVASTATIN CALCIUM
  9. CENTRUM [Concomitant]
     Active Substance: VITAMINS
  10. VITAMIN C [Concomitant]
     Active Substance: ASCORBIC ACID
  11. VALSARTAN. [Concomitant]
     Active Substance: VALSARTAN

REACTIONS (12)
  - Throat tightness [None]
  - Skin disorder [None]
  - Urticaria [None]
  - Eyelid oedema [None]
  - Eye swelling [None]
  - Rash pruritic [None]
  - Rash macular [None]
  - Swollen tongue [None]
  - Lip swelling [None]
  - Vision blurred [None]
  - Speech disorder [None]
  - Rash [None]

NARRATIVE: CASE EVENT DATE: 20151123
